FAERS Safety Report 7080287-X (Version None)
Quarter: 2010Q4

REPORT INFORMATION
  Report Type: 
  Country: None (occurrence: None)
  Receive Date: 20101022
  Receipt Date: 20101008
  Transmission Date: 20110411
  Serious: Yes (Other)
  Sender: FDA-Public Use
  Company Number: COL_02595_2010

PATIENT
  Age: 57 Year
  Sex: Female

DRUGS (5)
  1. PERIOGARD ALCOHOL FREE 0.12% CHLORHEXIDINE (GABA INTERNATIONAL AG) [Suspect]
     Indication: GINGIVITIS
     Dosage: (NI/BID/ORAL)
     Route: 048
     Dates: start: 20100701, end: 20101006
  2. ARGININE ASPARTATE [Concomitant]
  3. CALOBA [Concomitant]
  4. CRATAEGI [Concomitant]
  5. CAQUITOS [Concomitant]

REACTIONS (6)
  - LIP SWELLING [None]
  - NERVOUSNESS [None]
  - PALPITATIONS [None]
  - SKIN IRRITATION [None]
  - SWELLING FACE [None]
  - TACHYCARDIA [None]
